FAERS Safety Report 7435558-1 (Version None)
Quarter: 2011Q2

REPORT INFORMATION
  Report Type: 
  Country: None (occurrence: None)
  Receive Date: 20110425
  Receipt Date: 20110419
  Transmission Date: 20111010
  Serious: No
  Sender: FDA-Public Use
  Company Number: US-PFIZER INC-2011085565

PATIENT
  Age: 75 Year
  Sex: Female

DRUGS (3)
  1. NORVASC [Suspect]
     Dosage: UNK
     Dates: start: 20101201
  2. BYSTOLIC [Suspect]
     Dosage: UNK
  3. LISINOPRIL [Suspect]
     Dosage: UNK

REACTIONS (1)
  - BLOOD PRESSURE INADEQUATELY CONTROLLED [None]
